FAERS Safety Report 19114306 (Version 1)
Quarter: 2021Q2

REPORT INFORMATION
  Report Type: Spontaneous
  Country: TR (occurrence: TR)
  Receive Date: 20210408
  Receipt Date: 20210408
  Transmission Date: 20210717
  Serious: Yes (Other)
  Sender: FDA-Public Use
  Company Number: TR-GILEAD-2021-0524010

PATIENT
  Age: 32 Year
  Sex: Male

DRUGS (8)
  1. AMOXICILLIN. [Concomitant]
     Active Substance: AMOXICILLIN
  2. METRONIDAZOLE. [Concomitant]
     Active Substance: METRONIDAZOLE
  3. MESALAZINE [Concomitant]
     Active Substance: MESALAMINE
  4. RALTEGRAVIR. [Concomitant]
     Active Substance: RALTEGRAVIR
  5. ELVITEGRAVIR [Concomitant]
     Active Substance: ELVITEGRAVIR
  6. GENVOYA [Suspect]
     Active Substance: COBICISTAT\ELVITEGRAVIR\EMTRICITABINE\TENOFOVIR ALAFENAMIDE FUMARATE
     Indication: HIV INFECTION
     Dosage: UNK
     Route: 065
     Dates: start: 2017, end: 2019
  7. DOLUTEGRAVIR [Concomitant]
     Active Substance: DOLUTEGRAVIR
  8. TETRACYLINE HCL [Concomitant]
     Active Substance: TETRACYCLINE HYDROCHLORIDE

REACTIONS (6)
  - Blood creatinine increased [Recovered/Resolved]
  - Glomerular filtration rate abnormal [Recovering/Resolving]
  - Colitis ulcerative [Recovering/Resolving]
  - Blood cholesterol increased [Not Recovered/Not Resolved]
  - Blood HIV RNA increased [Recovered/Resolved]
  - Weight increased [Recovered/Resolved]

NARRATIVE: CASE EVENT DATE: 2018
